FAERS Safety Report 8444119 (Version 2)
Quarter: 2014Q2

REPORT INFORMATION
  Report Type: Spontaneous
  Country: US (occurrence: US)
  Receive Date: 20120307
  Receipt Date: 20140619
  Transmission Date: 20141212
  Serious: Yes (Congenital Anomaly)
  Sender: FDA-Public Use
  Company Number: US-RANBAXY-2012US-53397

PATIENT
  Sex: 0

DRUGS (8)
  1. CARBAMAZEPINE [Suspect]
     Indication: EPILEPSY
     Dosage: UNK
     Route: 064
  2. CARBAMAZEPINE [Suspect]
     Indication: AFFECTIVE DISORDER
  3. CLONAZEPAM [Suspect]
     Indication: EPILEPSY
     Dosage: UNK
     Route: 064
  4. CLONAZEPAM [Suspect]
     Indication: AFFECTIVE DISORDER
  5. GABAPENTIN [Suspect]
     Indication: EPILEPSY
     Dosage: UNK
     Route: 064
  6. GABAPENTIN [Suspect]
     Indication: AFFECTIVE DISORDER
  7. TOPIRAMATE [Suspect]
     Indication: EPILEPSY
     Dosage: UNK
     Route: 064
  8. TOPIRAMATE [Suspect]
     Indication: AFFECTIVE DISORDER

REACTIONS (3)
  - Foetal exposure during pregnancy [Unknown]
  - Cleft lip [Unknown]
  - Cleft palate [Unknown]
